FAERS Safety Report 6808839-X (Version None)
Quarter: 2010Q2

REPORT INFORMATION
  Report Type: 
  Country: None (occurrence: None)
  Receive Date: 20100630
  Receipt Date: 20090923
  Transmission Date: 20101027
  Serious: No
  Sender: FDA-Public Use
  Company Number: US-PFIZER INC-2009274125

PATIENT
  Sex: Male

DRUGS (6)
  1. VIAGRA [Suspect]
     Indication: ERECTILE DYSFUNCTION
     Dosage: 25 MG, UNK
     Route: 048
  2. DIPENTUM [Concomitant]
     Indication: LIVER DISORDER
     Dosage: UNK
  3. COZAAR [Concomitant]
     Indication: BLOOD PRESSURE
     Dosage: UNK
  4. PRILOSEC [Concomitant]
     Dosage: UNK
  5. URSODIOL [Concomitant]
     Indication: LIVER DISORDER
     Dosage: UNK
  6. URSODIOL [Concomitant]
     Indication: COLITIS

REACTIONS (1)
  - SINUS CONGESTION [None]
